FAERS Safety Report 15858193 (Version 1)
Quarter: 2018Q4

REPORT INFORMATION
  Report Type: Spontaneous
  Country: US (occurrence: US)
  Receive Date: 20181228
  Receipt Date: 20181228
  Transmission Date: 20190205
  Serious: Yes (Life-Threatening)
  Sender: FDA-Public Use
  Company Number: None

PATIENT
  Age: 67 Year
  Sex: Male

DRUGS (1)
  1. AZTREONAM. [Suspect]
     Active Substance: AZTREONAM
     Indication: PNEUMONIA
     Route: 042
     Dates: start: 20180909, end: 20180911

REACTIONS (2)
  - Thrombocytopenia [None]
  - Therapy change [None]

NARRATIVE: CASE EVENT DATE: 20180912
